FAERS Safety Report 25586410 (Version 2)
Quarter: 2025Q3

REPORT INFORMATION
  Report Type: Report from Study
  Country: US (occurrence: US)
  Receive Date: 20250721
  Receipt Date: 20250724
  Transmission Date: 20251021
  Serious: Yes (Hospitalization)
  Sender: ABBVIE
  Company Number: US-ABBVIE-6353194

PATIENT
  Age: 82 Year
  Sex: Female

DRUGS (2)
  1. CREON [Suspect]
     Active Substance: PANCRELIPASE AMYLASE\PANCRELIPASE LIPASE\PANCRELIPASE PROTEASE
     Indication: Pancreatic failure
     Route: 048
     Dates: start: 20240601
  2. CREON [Suspect]
     Active Substance: PANCRELIPASE AMYLASE\PANCRELIPASE LIPASE\PANCRELIPASE PROTEASE
     Indication: Pancreatic failure
     Route: 048
     Dates: start: 20241220

REACTIONS (14)
  - Nerve injury [Not Recovered/Not Resolved]
  - Back disorder [Unknown]
  - Dyspepsia [Not Recovered/Not Resolved]
  - Frustration tolerance decreased [Not Recovered/Not Resolved]
  - Tooth disorder [Unknown]
  - Fall [Recovered/Resolved]
  - Breast disorder [Unknown]
  - Excessive skin [Not Recovered/Not Resolved]
  - Malaise [Not Recovered/Not Resolved]
  - Patella fracture [Recovered/Resolved]
  - Head injury [Recovering/Resolving]
  - Swelling [Not Recovered/Not Resolved]
  - Headache [Recovering/Resolving]
  - Gastrooesophageal reflux disease [Recovering/Resolving]

NARRATIVE: CASE EVENT DATE: 20241224
